FAERS Safety Report 7161659-1 (Version None)
Quarter: 2010Q4

REPORT INFORMATION
  Report Type: 
  Country: None (occurrence: None)
  Receive Date: 20101215
  Receipt Date: 20101202
  Transmission Date: 20110411
  Serious: Yes (Hospitalization)
  Sender: FDA-Public Use
  Company Number: JP-PFIZER INC-JP-WYE-H14414510

PATIENT
  Age: 81 Year
  Sex: Male

DRUGS (7)
  1. ZOSYN [Suspect]
     Dosage: 18 G, 1X/DAY
     Route: 041
     Dates: start: 20100226, end: 20100307
  2. ONE-ALPHA [Concomitant]
     Indication: MYELODYSPLASTIC SYNDROME
     Dosage: 1 UG, 1X/DAY
     Route: 048
     Dates: end: 20100312
  3. GLAKAY [Concomitant]
     Indication: MYELODYSPLASTIC SYNDROME
     Dosage: 45 MG, 1X/DAY
     Route: 048
     Dates: end: 20100312
  4. PRIMOBOLAN [Concomitant]
     Indication: MYELODYSPLASTIC SYNDROME
     Dosage: 15 MG, 1X/DAY
     Route: 048
     Dates: end: 20100312
  5. SELBEX [Concomitant]
     Indication: GASTRITIS
     Dosage: 150 MG, 1X/DAY
     Route: 048
     Dates: end: 20100312
  6. GASTER [Concomitant]
     Dosage: 40 MG, 1X/DAY
     Route: 048
     Dates: end: 20100312
  7. CALONAL [Concomitant]
     Indication: PNEUMONIA
     Dosage: UNK
     Route: 048
     Dates: start: 20100227, end: 20100301

REACTIONS (2)
  - CHOLESTASIS [None]
  - HEPATIC FUNCTION ABNORMAL [None]
